FAERS Safety Report 5725633-1 (Version None)
Quarter: 2008Q2

REPORT INFORMATION
  Report Type: 
  Country: None (occurrence: None)
  Receive Date: 20080501
  Receipt Date: 20080421
  Transmission Date: 20081010
  Serious: Yes (Hospitalization, Other)
  Sender: FDA-Public Use
  Company Number: US-BOEHRINGER INGELHEIM GMBH, GERMANY-2008-BP-06232BP

PATIENT
  Age: 81 Year
  Sex: Male

DRUGS (3)
  1. FLOMAX [Suspect]
     Indication: BENIGN PROSTATIC HYPERPLASIA
     Route: 048
     Dates: start: 20010101
  2. PROSCAR [Concomitant]
  3. PLAVIX [Concomitant]
     Indication: TRANSIENT ISCHAEMIC ATTACK

REACTIONS (3)
  - DIZZINESS [None]
  - HYPOTENSION [None]
  - VOLVULUS [None]
